FAERS Safety Report 23670860 (Version 2)
Quarter: 2024Q2

REPORT INFORMATION
  Report Type: Spontaneous
  Country: US (occurrence: US)
  Receive Date: 20240326
  Receipt Date: 20240425
  Transmission Date: 20240715
  Serious: Yes (Other)
  Sender: FDA-Public Use
  Company Number: US-BRISTOL-MYERS SQUIBB COMPANY-2024-046999

PATIENT
  Age: 71 Year
  Sex: Female

DRUGS (2)
  1. LENALIDOMIDE [Suspect]
     Active Substance: LENALIDOMIDE
     Indication: Monoclonal gammopathy
     Dosage: 1 CAPSULE BY MOUTH EVERY OTHER DAY.
     Route: 048
  2. LENALIDOMIDE [Suspect]
     Active Substance: LENALIDOMIDE
     Dosage: 1 CAPSULE BY MOUTH EVERY OTHER DAY.
     Route: 048

REACTIONS (4)
  - Full blood count abnormal [Recovered/Resolved]
  - Off label use [Unknown]
  - Limb discomfort [Unknown]
  - Illness [Unknown]
